FAERS Safety Report 16148578 (Version 2)
Quarter: 2019Q2

REPORT INFORMATION
  Report Type: Report from Study
  Country: US (occurrence: US)
  Receive Date: 20190402
  Receipt Date: 20190402
  Transmission Date: 20190711
  Serious: Yes (Death)
  Sender: FDA-Public Use
  Company Number: US-PFIZER INC-2019140075

PATIENT
  Age: 74 Year
  Sex: Male
  Weight: 59 kg

DRUGS (12)
  1. ALBUTEROL [SALBUTAMOL] [Concomitant]
     Active Substance: ALBUTEROL
     Indication: PROPHYLAXIS
     Dosage: 2 DF (2/PUFF), AS NEEDED
     Route: 055
     Dates: start: 20171214
  2. DUONEB [Concomitant]
     Active Substance: ALBUTEROL SULFATE\IPRATROPIUM BROMIDE
     Indication: PROPHYLAXIS
     Dosage: 3 ML, AS NEEDED
     Route: 055
     Dates: start: 20171017
  3. DILTIAZEM. [Concomitant]
     Active Substance: DILTIAZEM
     Indication: PROPHYLAXIS
     Dosage: 180 MG, DAILY
     Route: 048
     Dates: start: 20150413
  4. PROTONIX [Concomitant]
     Active Substance: PANTOPRAZOLE SODIUM
     Indication: PROPHYLAXIS
     Dosage: 40 MG, DAILY
     Route: 048
     Dates: start: 20180823
  5. VITAMIN D3 [Concomitant]
     Active Substance: CHOLECALCIFEROL
     Indication: PROPHYLAXIS
     Dosage: 1000 IU, DAILY
     Route: 048
     Dates: start: 20171030
  6. DALTEPARIN SODIUM [Suspect]
     Active Substance: DALTEPARIN SODIUM
     Indication: PULMONARY EMBOLISM
     Dosage: 10000 IU, DAILY
     Route: 058
     Dates: start: 20180823, end: 20190320
  7. KEPPRA [Concomitant]
     Active Substance: LEVETIRACETAM
     Indication: PROPHYLAXIS
     Dosage: 1000 MG, 2X/DAY
     Route: 048
     Dates: start: 20140307
  8. PRAVACHOL [Concomitant]
     Active Substance: PRAVASTATIN SODIUM
     Indication: PROPHYLAXIS
     Dosage: 80 MG, DAILY
     Route: 048
     Dates: start: 20180105
  9. SUPER THERAVITE-M [Concomitant]
     Indication: PROPHYLAXIS
     Dosage: 1 DF, DAILY
     Route: 048
     Dates: start: 20171017
  10. LEVOTHYROXINE. [Concomitant]
     Active Substance: LEVOTHYROXINE
     Indication: PROPHYLAXIS
     Dosage: 25 UG, DAILY
     Route: 048
     Dates: start: 20180822
  11. ASPIRIN. [Concomitant]
     Active Substance: ASPIRIN
     Indication: PROPHYLAXIS
     Dosage: 81 MG, DAILY
     Route: 048
     Dates: start: 20110906
  12. REMERON [Concomitant]
     Active Substance: MIRTAZAPINE
     Indication: PROPHYLAXIS
     Dosage: 30 MG, DAILY
     Route: 048
     Dates: start: 20180801

REACTIONS (1)
  - Death [Fatal]

NARRATIVE: CASE EVENT DATE: 20190321
